FAERS Safety Report 6166917-5 (Version None)
Quarter: 2009Q2

REPORT INFORMATION
  Report Type: 
  Country: None (occurrence: None)
  Receive Date: 20090423
  Receipt Date: 20090423
  Transmission Date: 20091009
  Serious: Yes (Hospitalization, Disabling)
  Sender: FDA-Public Use
  Company Number: None

PATIENT
  Age: 60 Year
  Sex: Male
  Weight: 128 kg

DRUGS (1)
  1. PHENYTOIN SODIUM [Suspect]
     Indication: ANTICONVULSANT DRUG LEVEL DECREASED
     Dosage: 600  1X IV
     Route: 042
     Dates: start: 20090208, end: 20090208

REACTIONS (1)
  - PURPLE GLOVE SYNDROME [None]
